FAERS Safety Report 9700736 (Version 1)
Quarter: 2013Q4

REPORT INFORMATION
  Report Type: Spontaneous
  Country: US (occurrence: US)
  Receive Date: 20131121
  Receipt Date: 20131121
  Transmission Date: 20140711
  Serious: No
  Sender: FDA-Public Use
  Company Number: US-PFIZER INC-2013332193

PATIENT
  Age: 48 Year
  Sex: Female
  Weight: 53.97 kg

DRUGS (2)
  1. LYRICA [Suspect]
     Indication: HERPES ZOSTER
     Dosage: 100 MG, DAILY
     Dates: start: 201205
  2. LYRICA [Suspect]
     Indication: POST HERPETIC NEURALGIA
     Dosage: 50 MG, DAILY

REACTIONS (5)
  - Pyrexia [Unknown]
  - Malaise [Unknown]
  - Influenza [Unknown]
  - Pain [Unknown]
  - Dyspnoea [Unknown]
